FAERS Safety Report 8840898 (Version 2)
Quarter: 2015Q3

REPORT INFORMATION
  Report Type: Report from Study
  Country: US (occurrence: US)
  Receive Date: 20121015
  Receipt Date: 20150821
  Transmission Date: 20151125
  Serious: Yes (Hospitalization)
  Sender: FDA-Public Use
  Company Number: US-ROCHE-1130349

PATIENT
  Age: 7 Year
  Sex: Male

DRUGS (7)
  1. NUTROPIN [Suspect]
     Active Substance: SOMATROPIN
     Indication: AZOTAEMIA
     Route: 058
  2. CEFOTAXIME [Concomitant]
     Active Substance: CEFOTAXIME SODIUM
  3. PREDNISONE. [Concomitant]
     Active Substance: PREDNISONE
  4. IMURAN [Concomitant]
     Active Substance: AZATHIOPRINE
  5. ATENOLOL. [Concomitant]
     Active Substance: ATENOLOL
  6. CECLOR [Concomitant]
     Active Substance: CEFACLOR
  7. NUTROPIN [Suspect]
     Active Substance: SOMATROPIN
     Indication: CHRONIC KIDNEY DISEASE
     Route: 058

REACTIONS (6)
  - Headache [Recovered/Resolved]
  - Vomiting [Recovered/Resolved]
  - Anaemia [Unknown]
  - Haematocrit decreased [Unknown]
  - Urinary tract infection [Unknown]
  - Diarrhoea [Unknown]

NARRATIVE: CASE EVENT DATE: 199709
